FAERS Safety Report 9311752 (Version 1)
Quarter: 2013Q2

REPORT INFORMATION
  Report Type: Spontaneous
  Country: JP (occurrence: JP)
  Receive Date: 20130528
  Receipt Date: 20130528
  Transmission Date: 20140414
  Serious: Yes (Other)
  Sender: FDA-Public Use
  Company Number: JP-BAYER-2013-012914

PATIENT
  Age: 26 Year
  Sex: Female

DRUGS (2)
  1. YAZ [Suspect]
     Indication: DYSMENORRHOEA
     Dosage: 1 DF, QD
     Route: 048
     Dates: start: 20110602, end: 201301
  2. VALTREX [Suspect]
     Indication: HERPES SIMPLEX
     Dosage: DAILY DOSE 1000 MG
     Route: 048
     Dates: start: 20120331, end: 20120404

REACTIONS (3)
  - Eustachian tube patulous [Unknown]
  - Deafness [None]
  - Ear discomfort [Unknown]
